FAERS Safety Report 10238458 (Version 1)
Quarter: 2014Q2

REPORT INFORMATION
  Report Type: Spontaneous
  Country: TR (occurrence: None)
  Receive Date: 20140612
  Receipt Date: 20140612
  Transmission Date: 20141212
  Serious: Yes (Hospitalization)
  Sender: FDA-Public Use
  Company Number: SYM-2014-21688

PATIENT
  Age: 22 Month
  Sex: Male

DRUGS (4)
  1. CICLOPIROX OLAMINE [Suspect]
     Indication: RASH
     Route: 061
  2. CLARITHROMYCIN (CLARITHROMYCIN) [Suspect]
     Indication: OTITIS MEDIA ACUTE
  3. ISOCONAZOLE NITRATE [Suspect]
     Indication: RASH
     Route: 061
  4. CEFIXIME [Suspect]
     Indication: OTITIS MEDIA ACUTE

REACTIONS (4)
  - Rash [None]
  - Rash [None]
  - Pruritus [None]
  - Rash papular [None]
